FAERS Safety Report 24371711 (Version 2)
Quarter: 2024Q4

REPORT INFORMATION
  Report Type: Report from Study
  Country: CO (occurrence: CO)
  Receive Date: 20240927
  Receipt Date: 20241007
  Transmission Date: 20250115
  Serious: Yes (Hospitalization, Other)
  Sender: UCB
  Company Number: CO-UCBSA-2024048663

PATIENT
  Age: 50 Year
  Sex: Female

DRUGS (3)
  1. CERTOLIZUMAB PEGOL [Suspect]
     Active Substance: CERTOLIZUMAB PEGOL
     Indication: Psoriasis
     Dosage: 200 MILLIGRAM, EV 15 DAYS, SOLUTION FOR INJECTION
     Route: 058
     Dates: start: 20230408, end: 20240722
  2. CYCLOBENZAPRINE [Concomitant]
     Active Substance: CYCLOBENZAPRINE
     Indication: Product used for unknown indication
     Dosage: UNK
  3. OXAPROZIN [Concomitant]
     Active Substance: OXAPROZIN
     Indication: Product used for unknown indication
     Dosage: UNK

REACTIONS (7)
  - Hernial eventration [Recovered/Resolved]
  - Eventration repair [Unknown]
  - Wound complication [Not Recovered/Not Resolved]
  - Inflammation of wound [Unknown]
  - Off label use [Unknown]
  - Product prescribing issue [Unknown]
  - Therapy interrupted [Unknown]

NARRATIVE: CASE EVENT DATE: 20230408
